FAERS Safety Report 12597970 (Version 1)
Quarter: 2016Q3

REPORT INFORMATION
  Report Type: Spontaneous
  Country: US (occurrence: None)
  Receive Date: 20160726
  Receipt Date: 20160726
  Transmission Date: 20161109
  Serious: Yes (Hospitalization, Disabling)
  Sender: FDA-Public Use
  Company Number: None

PATIENT
  Age: 69 Year
  Sex: Female
  Weight: 54.43 kg

DRUGS (19)
  1. VITAMIN E [Concomitant]
     Active Substance: .ALPHA.-TOCOPHEROL
  2. CALCIUM CITRATE [Concomitant]
     Active Substance: CALCIUM CITRATE
  3. AZELASTINE [Concomitant]
     Active Substance: AZELASTINE
  4. PROAIR HFA [Concomitant]
     Active Substance: ALBUTEROL SULFATE
  5. MUCINEX [Concomitant]
     Active Substance: GUAIFENESIN
  6. VITAMIN B COMPLEX [Concomitant]
     Active Substance: CYANOCOBALAMIN\DEXPANTHENOL\NIACINAMIDE\PYRIDOXINE HYDROCHLORIDE\RIBOFLAVIN 5^-PHOSPHATE SODIUM\THIAMINE HYDROCHLORIDE\VITAMIN B COMPLEX
  7. MULTIVITAMIN [Concomitant]
     Active Substance: VITAMINS
  8. SINGULAIR [Concomitant]
     Active Substance: MONTELUKAST SODIUM
  9. C [Concomitant]
  10. FISH OIL [Concomitant]
     Active Substance: FISH OIL
  11. ZINC [Concomitant]
     Active Substance: ZINC\ZINC CHLORIDE
  12. ALBUTEROL. [Concomitant]
     Active Substance: ALBUTEROL
  13. SULINDAC. [Concomitant]
     Active Substance: SULINDAC
  14. ZRYTEC [Concomitant]
  15. SELENIUM [Concomitant]
     Active Substance: SELENIUM
  16. BIOTIN [Concomitant]
     Active Substance: BIOTIN
  17. RECLAST [Suspect]
     Active Substance: ZOLEDRONIC ACID
     Indication: OSTEOPENIA
     Dosage: 100 ML ONCE A YEAR FOR 2 YRS INFUSION
     Dates: start: 20141013, end: 20151001
  18. PREDNISONE. [Concomitant]
     Active Substance: PREDNISONE
  19. VITAMIN D3 [Concomitant]
     Active Substance: CHOLECALCIFEROL

REACTIONS (3)
  - Weight bearing difficulty [None]
  - Fracture [None]
  - Pain [None]

NARRATIVE: CASE EVENT DATE: 20160115
